FAERS Safety Report 24788732 (Version 3)
Quarter: 2025Q1

REPORT INFORMATION
  Report Type: Spontaneous
  Country: FR (occurrence: FR)
  Receive Date: 20241230
  Receipt Date: 20250116
  Transmission Date: 20250408
  Serious: Yes (Hospitalization, Other)
  Sender: PFIZER
  Company Number: FR-ASTRAZENECA-202411EEA021277FR

PATIENT
  Age: 67 Year
  Sex: Male
  Weight: 71.4 kg

DRUGS (2)
  1. AZITHROMYCIN [Suspect]
     Active Substance: AZITHROMYCIN
     Indication: Antibiotic prophylaxis
     Dosage: 250 MG, DAILY
     Route: 065
     Dates: start: 20241128
  2. SOLIRIS [Suspect]
     Active Substance: ECULIZUMAB
     Indication: C3 glomerulopathy
     Dosage: 900 MG, WEEKLY
     Route: 065
     Dates: start: 20241125, end: 20241209

REACTIONS (4)
  - Sepsis [Unknown]
  - Hypotension [Unknown]
  - Diarrhoea [Unknown]
  - Off label use [Unknown]

NARRATIVE: CASE EVENT DATE: 20241128
